FAERS Safety Report 12846627 (Version 1)
Quarter: 2016Q4

REPORT INFORMATION
  Report Type: Spontaneous
  Country: US (occurrence: US)
  Receive Date: 20161013
  Receipt Date: 20161013
  Transmission Date: 20170207
  Serious: Yes (Other)
  Sender: FDA-Public Use
  Company Number: None

PATIENT
  Age: 63 Year
  Sex: Female
  Weight: 60.75 kg

DRUGS (10)
  1. CELEBREX [Concomitant]
     Active Substance: CELECOXIB
  2. MULTIVITAMIN [Concomitant]
     Active Substance: VITAMINS
  3. VITAMIN E [Concomitant]
     Active Substance: .ALPHA.-TOCOPHEROL
  4. CEPHALEXIN 500MG [Suspect]
     Active Substance: CEPHALEXIN
     Indication: BRONCHITIS
     Dosage: ?          QUANTITY:40 CAPSULE(S);?
     Route: 048
     Dates: start: 20161005, end: 20161012
  5. VYVANSE [Concomitant]
     Active Substance: LISDEXAMFETAMINE DIMESYLATE
  6. CEPHALEXIN 500MG [Suspect]
     Active Substance: CEPHALEXIN
     Indication: SINUSITIS
     Dosage: ?          QUANTITY:40 CAPSULE(S);?
     Route: 048
     Dates: start: 20161005, end: 20161012
  7. CEPHALEXIN 500MG [Suspect]
     Active Substance: CEPHALEXIN
     Indication: EAR INFECTION
     Dosage: ?          QUANTITY:40 CAPSULE(S);?
     Route: 048
     Dates: start: 20161005, end: 20161012
  8. MOTRIN [Concomitant]
     Active Substance: IBUPROFEN
  9. VITAMIN C [Concomitant]
     Active Substance: ASCORBIC ACID
  10. VITAMIN D [Concomitant]
     Active Substance: CHOLECALCIFEROL

REACTIONS (8)
  - Nausea [None]
  - Dysgeusia [None]
  - Chills [None]
  - Parosmia [None]
  - Diarrhoea [None]
  - Decreased appetite [None]
  - Haematochezia [None]
  - Mucous stools [None]

NARRATIVE: CASE EVENT DATE: 20161012
